FAERS Safety Report 4398141-0 (Version None)
Quarter: 2004Q3

REPORT INFORMATION
  Report Type: 
  Country: None (occurrence: None)
  Receive Date: 20040713
  Receipt Date: 20040701
  Transmission Date: 20050211
  Serious: Yes (Other)
  Sender: FDA-Public Use
  Company Number: CEL-2004-01404-ROC

PATIENT
  Age: 72 Year
  Sex: Female

DRUGS (3)
  1. TUSSIONEX [Suspect]
     Indication: COUGH
     Dosage: 5ML, EVERY SUNDAY FOR 9.5 YEARS, PO
     Route: 048
     Dates: start: 19940101
  2. TUSSIONEX [Suspect]
     Dosage: 5ML, EVERY NIGHT FOR PAST 6 MONTHS, PO
     Route: 048
  3. PREDNISONE TAB [Concomitant]

REACTIONS (5)
  - ASPERGILLOSIS [None]
  - CHEST PAIN [None]
  - MUSCULOSKELETAL DISORDER [None]
  - MYCOBACTERIUM AVIUM COMPLEX INFECTION [None]
  - PHARMACEUTICAL PRODUCT COMPLAINT [None]
